FAERS Safety Report 16739778 (Version 2)
Quarter: 2020Q2

REPORT INFORMATION
  Report Type: Spontaneous
  Country: PT (occurrence: PT)
  Receive Date: 20190826
  Receipt Date: 20200518
  Transmission Date: 20200713
  Serious: Yes (Life-Threatening, Hospitalization, Other)
  Sender: FDA-Public Use
  Company Number: PT-MYLANLABS-2019M1077918

PATIENT
  Age: 51 Year
  Sex: Female

DRUGS (9)
  1. METFORMIN [Interacting]
     Active Substance: METFORMIN HYDROCHLORIDE
     Indication: WEIGHT DECREASED
     Dosage: 230 MILLIGRAM, COMPOUNDED PREPARATION
     Route: 065
  2. BUPROPION. [Interacting]
     Active Substance: BUPROPION
     Indication: WEIGHT DECREASED
     Dosage: 120 MILLIGRAM, COMPOUNDED PREPARATION
     Route: 065
  3. CASCARA SAGRADA                    /00143201/ [Interacting]
     Active Substance: FRANGULA PURSHIANA BARK
     Indication: WEIGHT DECREASED
     Dosage: 60 MILLIGRAM, AT DOSAGE OF 2 CAPSULES/DAY; COMPOUNDED PREPARATION
     Route: 065
  4. CHLORDIAZEPOXIDE. [Interacting]
     Active Substance: CHLORDIAZEPOXIDE
     Indication: WEIGHT DECREASED
     Dosage: 10 MILLIGRAM, COMPOUNDED PREPARATION
     Route: 065
  5. CITRUS SINENSIS [Interacting]
     Active Substance: HERBALS\ORANGE
     Indication: WEIGHT DECREASED
     Dosage: 200 MILLIGRAM, COMPOUNDED PREPARATION
     Route: 065
  6. FUROSEMIDE. [Interacting]
     Active Substance: FUROSEMIDE
     Indication: WEIGHT DECREASED
     Dosage: 30 MILLIGRAM, COMPOUNDED PREPARATION
     Route: 065
  7. ETHINYLESTRADIOL/GESTODENE [Interacting]
     Active Substance: ETHINYL ESTRADIOL\GESTODENE
     Indication: ORAL CONTRACEPTION
     Dosage: UNK
     Route: 048
  8. TOPIRAMATE. [Suspect]
     Active Substance: TOPIRAMATE
     Indication: WEIGHT DECREASED
     Dosage: 35 MILLIGRAM, COMPOUNDED PREPARATION
     Route: 065
  9. HOODIA GORDONII [Interacting]
     Active Substance: DIETARY SUPPLEMENT
     Indication: WEIGHT DECREASED
     Dosage: 70 MILLIGRAM, COMPOUNDED PREPARATION
     Route: 065

REACTIONS (3)
  - Intentional product misuse [Recovered/Resolved]
  - Cerebral venous thrombosis [Recovered/Resolved]
  - Drug interaction [Recovered/Resolved]
